FAERS Safety Report 19472391 (Version 1)
Quarter: 2021Q2

REPORT INFORMATION
  Report Type: Spontaneous
  Country: US (occurrence: US)
  Receive Date: 20210629
  Receipt Date: 20210629
  Transmission Date: 20210717
  Serious: Yes (Other)
  Sender: FDA-Public Use
  Company Number: US-PFIZER INC-2021713492

PATIENT
  Age: 51 Year
  Sex: Male

DRUGS (8)
  1. MORPHINE SULFATE. [Suspect]
     Active Substance: MORPHINE SULFATE
     Dosage: 2 MG, 3X/DAY (EVERY 8 HRS AS NEEDED, 6% INCREASE)
     Route: 037
     Dates: start: 20180726
  2. METHADONE [Concomitant]
     Active Substance: METHADONE HYDROCHLORIDE
     Indication: ANALGESIC THERAPY
     Dosage: 40 MG, 1X/DAY
  3. MORPHINE SULFATE. [Suspect]
     Active Substance: MORPHINE SULFATE
     Dosage: 1.439 MG, 1X/DAY (20% INCREASE)
     Route: 037
     Dates: start: 20180206
  4. MORPHINE SULFATE. [Suspect]
     Active Substance: MORPHINE SULFATE
     Dosage: 1.726 MG (20% INCREASE)
     Route: 037
     Dates: start: 20180417
  5. MORPHINE SULFATE. [Suspect]
     Active Substance: MORPHINE SULFATE
     Dosage: 2.2 MG, 3X/DAY (EVERY 8 HRS AS NEEDED, 10% INCREASE)
     Route: 037
     Dates: start: 20180925
  6. MORPHINE SULFATE. [Suspect]
     Active Substance: MORPHINE SULFATE
     Indication: ANALGESIC THERAPY
     Dosage: 1.2 MG, 1X/DAY
     Route: 037
     Dates: start: 20171229
  7. MORPHINE SULFATE. [Suspect]
     Active Substance: MORPHINE SULFATE
     Dosage: 1.89 MG, 3X/DAY (EVERY 8 HRS AS NEEDED, 10% INCREASE)
     Route: 037
     Dates: start: 20180613
  8. MORPHINE SULFATE. [Suspect]
     Active Substance: MORPHINE SULFATE
     Dosage: 2.42 MG (EVERY 8 HRS AS NEEDED, 10% INCREASE)
     Route: 037
     Dates: start: 20181009

REACTIONS (3)
  - Arachnoiditis [Not Recovered/Not Resolved]
  - Off label use [Unknown]
  - Product use issue [Unknown]

NARRATIVE: CASE EVENT DATE: 20171229
